FAERS Safety Report 11124799 (Version 1)
Quarter: 2015Q2

REPORT INFORMATION
  Report Type: Spontaneous
  Country: US (occurrence: None)
  Receive Date: 20150519
  Receipt Date: 20150519
  Transmission Date: 20150821
  Serious: Yes (Other)
  Sender: FDA-Public Use
  Company Number: None

PATIENT
  Age: 18 Year
  Sex: Male
  Weight: 96.16 kg

DRUGS (1)
  1. ATOMOXETINE [Suspect]
     Active Substance: ATOMOXETINE
     Indication: ATTENTION DEFICIT/HYPERACTIVITY DISORDER
     Dosage: 1  40 MG  DAILY ORAL
     Route: 048

REACTIONS (7)
  - Nausea [None]
  - Anger [None]
  - Headache [None]
  - Disturbance in attention [None]
  - Drug ineffective [None]
  - Impulsive behaviour [None]
  - Vomiting [None]

NARRATIVE: CASE EVENT DATE: 20150504
